FAERS Safety Report 8955226 (Version 1)
Quarter: 2012Q4

REPORT INFORMATION
  Report Type: 
  Country: IT (occurrence: IT)
  Receive Date: 20121210
  Receipt Date: 20121210
  Transmission Date: 20130627
  Serious: Yes (Hospitalization)
  Sender: FDA-Public Use
  Company Number: IT-ABBOTT-12P-083-1017783-00

PATIENT
  Age: 17 Year
  Sex: Male

DRUGS (6)
  1. DEPAKINE CHRONO [Suspect]
     Indication: EPILEPSY
     Route: 048
     Dates: start: 20121113, end: 20121113
  2. DEPAKINE CHRONO [Suspect]
     Indication: INTENTIONAL OVERDOSE
     Dates: start: 2010
  3. DEPAKINE CHRONO [Suspect]
     Dates: start: 2012
  4. DEPAKINE CHRONO [Suspect]
     Indication: EPILEPSY
     Route: 048
     Dates: start: 20121113, end: 20121113
  5. DEPAKINE CHRONO [Suspect]
     Indication: INTENTIONAL OVERDOSE
     Route: 048
     Dates: start: 2010
  6. DEPAKINE CHRONO [Suspect]
     Route: 048
     Dates: start: 2012

REACTIONS (5)
  - Fall [Recovered/Resolved]
  - Intentional overdose [Recovered/Resolved]
  - Convulsion [Recovered/Resolved]
  - Hypotonia [Recovered/Resolved]
  - Posture abnormal [Recovered/Resolved]
